FAERS Safety Report 6612413-8 (Version None)
Quarter: 2010Q1

REPORT INFORMATION
  Report Type: 
  Country: None (occurrence: None)
  Receive Date: 20100303
  Receipt Date: 20100219
  Transmission Date: 20100710
  Serious: Yes (Other)
  Sender: FDA-Public Use
  Company Number: PHHY2009JP52176

PATIENT
  Sex: Female
  Weight: 65 kg

DRUGS (10)
  1. ZOMETA [Suspect]
     Indication: METASTASES TO BONE
     Dosage: 4 MG (PER ADMINISTRATION)
     Route: 042
     Dates: start: 20090204, end: 20091028
  2. ZOMETA [Suspect]
     Dosage: 3 MG, UNK
     Route: 042
     Dates: start: 20100127, end: 20100127
  3. AREDIA [Suspect]
     Indication: METASTASES TO BONE
     Dosage: 90 MG (PER ADMINISTRATION)
     Route: 042
     Dates: start: 20080618, end: 20090107
  4. FOSAMAX [Suspect]
     Indication: OSTEOPOROSIS
     Dosage: 5 MG/DAY
     Route: 048
     Dates: start: 20060213, end: 20080124
  5. FEMARA [Concomitant]
     Indication: BREAST CANCER
     Dosage: 2.5 MG, UNK
     Route: 048
     Dates: start: 20080402
  6. TAKEPRON [Concomitant]
     Indication: GASTRITIS
     Dosage: 1 DF, UNK
     Route: 048
  7. LIPODOWN [Concomitant]
     Indication: HYPERLIPIDAEMIA
     Dosage: 1 DF, UNK
     Route: 048
  8. NORVASC [Concomitant]
     Indication: HYPERTENSION
     Dosage: 1 DF, UNK
     Route: 048
  9. EPINASTINE HYDROCHLORIDE [Concomitant]
     Indication: PRURITUS GENERALISED
     Dosage: 1 DF, UNK
     Route: 048
  10. CHEMOTHERAPEUTICS NOS [Concomitant]

REACTIONS (12)
  - ALANINE AMINOTRANSFERASE INCREASED [None]
  - ASPARTATE AMINOTRANSFERASE INCREASED [None]
  - BLOOD ALKALINE PHOSPHATASE INCREASED [None]
  - BLOOD LACTATE DEHYDROGENASE INCREASED [None]
  - BONE DISORDER [None]
  - HYPOAESTHESIA [None]
  - HYPOAESTHESIA ORAL [None]
  - OSTEONECROSIS [None]
  - PLATELET COUNT INCREASED [None]
  - SENSATION OF FOREIGN BODY [None]
  - STOMATITIS [None]
  - TOOTHACHE [None]
